FAERS Safety Report 4936384-5 (Version None)
Quarter: 2006Q1

REPORT INFORMATION
  Report Type: 
  Country: None (occurrence: None)
  Receive Date: 20060307
  Receipt Date: 20060227
  Transmission Date: 20060701
  Serious: Yes (Other)
  Sender: FDA-Public Use
  Company Number: US-JNJFOC-20060300203

PATIENT
  Sex: Female
  Weight: 78.02 kg

DRUGS (11)
  1. REMICADE [Suspect]
     Indication: RHEUMATOID ARTHRITIS
     Dosage: 3 VIALS
     Route: 042
  2. SEROQUEL [Concomitant]
  3. LAMICTAL [Concomitant]
  4. METHOTREXATE [Concomitant]
  5. DARVOCET [Concomitant]
  6. DARVOCET [Concomitant]
  7. PREDNISONE [Concomitant]
  8. FOLIC ACID [Concomitant]
  9. CELEBREX [Concomitant]
  10. MAXZIDE [Concomitant]
  11. MAXZIDE [Concomitant]

REACTIONS (8)
  - BLOOD GLUCOSE INCREASED [None]
  - DRY MOUTH [None]
  - DYSPHAGIA [None]
  - FATIGUE [None]
  - GENITAL PRURITUS FEMALE [None]
  - NIPPLE DISORDER [None]
  - POLLAKIURIA [None]
  - THIRST [None]
